FAERS Safety Report 10257844 (Version 1)
Quarter: 2014Q2

REPORT INFORMATION
  Report Type: Spontaneous
  Country: HR (occurrence: None)
  Receive Date: 20140620
  Receipt Date: 20140620
  Transmission Date: 20141212
  Serious: Yes (Hospitalization)
  Sender: FDA-Public Use
  Company Number: FK201402367

PATIENT
  Age: 33 Year
  Sex: Male
  Weight: 90 kg

DRUGS (3)
  1. CEFTRIAXON [Suspect]
     Indication: BRAIN ABSCESS
     Route: 042
     Dates: start: 20140331, end: 20140512
  2. METRONIDAZOLE [Suspect]
     Indication: BRAIN ABSCESS
     Route: 048
     Dates: start: 20140331, end: 20140512
  3. FENOBARBITON (PHENOBARBITAL) (PHENOBARBITAL) [Suspect]
     Indication: BRAIN ABSCESS
     Route: 048
     Dates: start: 20140331

REACTIONS (3)
  - Ageusia [None]
  - Pseudomembranous colitis [None]
  - Clostridium difficile infection [None]
